FAERS Safety Report 10020982 (Version 2)
Quarter: 2014Q2

REPORT INFORMATION
  Report Type: Report from Study
  Country: JP (occurrence: JP)
  Receive Date: 20140319
  Receipt Date: 20140407
  Transmission Date: 20141212
  Serious: Yes (Hospitalization)
  Sender: FDA-Public Use
  Company Number: JP-JNJFOC-20140309649

PATIENT
  Age: 31 Year
  Sex: Male
  Weight: 58 kg

DRUGS (17)
  1. BLINDED; GOLIMUMA [Suspect]
     Indication: COLITIS ULCERATIVE
     Route: 058
     Dates: start: 20140228
  2. PLACEBO [Suspect]
     Indication: COLITIS ULCERATIVE
     Route: 058
     Dates: start: 20140228
  3. ASACOL [Concomitant]
     Indication: COLITIS ULCERATIVE
     Route: 048
  4. BIO-THREE [Concomitant]
     Indication: COLITIS ULCERATIVE
     Route: 048
  5. LAXOBERON [Concomitant]
     Indication: ENDOSCOPY LARGE BOWEL
     Route: 048
     Dates: start: 20140109, end: 20140109
  6. GASCON [Concomitant]
     Indication: ENDOSCOPY LARGE BOWEL
     Route: 048
     Dates: start: 20140109, end: 20140109
  7. NIFLEC [Concomitant]
     Indication: ENDOSCOPY LARGE BOWEL
     Route: 048
     Dates: start: 20140109, end: 20140109
  8. LOXONIN [Concomitant]
     Route: 048
     Dates: start: 20140206, end: 20140206
  9. GLYCERINE [Concomitant]
     Indication: ENDOSCOPY LARGE BOWEL
     Route: 061
     Dates: start: 20140228, end: 20140228
  10. NEXIUM [Concomitant]
     Indication: PROPHYLAXIS
     Route: 048
     Dates: start: 20140310
  11. SOLITA-T NO.1 [Concomitant]
     Route: 041
     Dates: start: 20140310, end: 20140310
  12. VEEN-F [Concomitant]
     Indication: FLUID REPLACEMENT
     Dosage: 500-1500ML/DAY
     Route: 041
     Dates: start: 20140310, end: 20140317
  13. VITAMEDIN [Concomitant]
     Indication: VITAMIN SUPPLEMENTATION
     Route: 041
     Dates: start: 20140312, end: 20140314
  14. OMNISCAN [Concomitant]
     Indication: NUCLEAR MAGNETIC RESONANCE IMAGING BRAIN
     Route: 042
     Dates: start: 20140317, end: 20140317
  15. OMNISCAN [Concomitant]
     Indication: NUCLEAR MAGNETIC RESONANCE IMAGING
     Route: 042
     Dates: start: 20140317, end: 20140317
  16. SORBITOL [Concomitant]
     Indication: CONSTIPATION PROPHYLAXIS
     Route: 048
     Dates: start: 20140312, end: 20140312
  17. BARICONC MX [Concomitant]
     Indication: X-RAY
     Route: 048
     Dates: start: 20140312, end: 20140312

REACTIONS (1)
  - Cerebral infarction [Recovering/Resolving]
